FAERS Safety Report 7464908-5 (Version None)
Quarter: 2011Q2

REPORT INFORMATION
  Report Type: 
  Country: None (occurrence: None)
  Receive Date: 20110509
  Receipt Date: 20110324
  Transmission Date: 20111010
  Serious: Yes (Hospitalization, Other)
  Sender: FDA-Public Use
  Company Number: DE-BAYER-2010-005204

PATIENT
  Age: 19 Year
  Sex: Female

DRUGS (6)
  1. CORTISONE ACETATE [Interacting]
     Indication: MULTIPLE SCLEROSIS RELAPSE
  2. BETAFERON [Suspect]
     Indication: RELAPSING-REMITTING MULTIPLE SCLEROSIS
     Dosage: 8 MIU, QOD
     Route: 058
     Dates: start: 20100701, end: 20101201
  3. VALETTE [Interacting]
     Indication: MULTIPLE SCLEROSIS RELAPSE
  4. METHYLPREDNISOLONE ACETATE [Concomitant]
     Dosage: 2000 MG, UNK
     Route: 042
  5. ORAL CONTRACEPTIVE NOS [Concomitant]
     Indication: CONTRACEPTION
  6. IBUPROFEN [Concomitant]
     Indication: PREMEDICATION
     Dosage: 800 MG, PRN
     Dates: start: 20100701

REACTIONS (8)
  - TRANSAMINASES INCREASED [None]
  - CHROMATURIA [None]
  - FAECES DISCOLOURED [None]
  - BLOOD BILIRUBIN INCREASED [None]
  - MULTIPLE SCLEROSIS RELAPSE [None]
  - HEPATITIS [None]
  - PIGMENTATION DISORDER [None]
  - PROTHROMBIN TIME PROLONGED [None]
